FAERS Safety Report 12082846 (Version 2)
Quarter: 2016Q1

REPORT INFORMATION
  Report Type: Report from Study
  Country: RU (occurrence: RU)
  Receive Date: 20160217
  Receipt Date: 20160219
  Transmission Date: 20160526
  Serious: Yes (Death, Life-Threatening, Hospitalization)
  Sender: FDA-Public Use
  Company Number: RU-ROCHE-1673668

PATIENT
  Age: 57 Year
  Sex: Female

DRUGS (32)
  1. ISOSORBIDE DINITRATE. [Concomitant]
     Active Substance: ISOSORBIDE DINITRATE
     Indication: TACHYCARDIA
     Route: 048
     Dates: start: 20120322, end: 20120328
  2. AMLODIPINE [Concomitant]
     Active Substance: AMLODIPINE BESYLATE
     Indication: HYPERTENSION
     Route: 048
     Dates: start: 201202
  3. ACETYLSALICYLIC ACID [Concomitant]
     Active Substance: ASPIRIN
     Indication: PROPHYLAXIS
     Route: 048
     Dates: start: 200510
  4. FERROUS SULFATE [Concomitant]
     Active Substance: FERROUS SULFATE\FERROUS SULFATE, DRIED
     Indication: PNEUMONIA
     Route: 048
     Dates: start: 20130204, end: 20130215
  5. ACICLOVIR [Concomitant]
     Active Substance: ACYCLOVIR
     Indication: ORAL HERPES
     Route: 061
     Dates: start: 20150517, end: 20150524
  6. TOCILIZUMAB [Suspect]
     Active Substance: TOCILIZUMAB
     Indication: RHEUMATOID ARTHRITIS
     Dosage: LAST DOSE PRIOR TO ADVERSE EVENT : 05/NOV/2015
     Route: 042
  7. WARFARIN [Suspect]
     Active Substance: WARFARIN
     Indication: AORTIC ANEURYSM
     Route: 048
     Dates: start: 20150130
  8. PARACETAMOL [Concomitant]
     Active Substance: ACETAMINOPHEN
     Indication: PYREXIA
     Route: 048
     Dates: start: 20120907, end: 20120910
  9. DEXALGIN [Concomitant]
     Indication: SCIATICA
     Route: 030
     Dates: start: 20131211, end: 20131212
  10. DEXALGIN [Concomitant]
     Route: 030
     Dates: start: 20131011, end: 20131012
  11. SOTALOL. [Concomitant]
     Active Substance: SOTALOL
     Indication: AORTIC ANEURYSM
     Route: 048
     Dates: start: 20150620
  12. TRIMETAZIDINE [Concomitant]
     Active Substance: TRIMETAZIDINE
     Indication: PROPHYLAXIS
     Route: 048
     Dates: start: 20100623
  13. CHLORHEXIDINE [Concomitant]
     Active Substance: CHLORHEXIDINE
     Route: 061
     Dates: start: 20140424
  14. MELOXICAM. [Concomitant]
     Active Substance: MELOXICAM
     Indication: RHEUMATOID ARTHRITIS
     Route: 048
     Dates: start: 20100615
  15. METHOTREXATE [Concomitant]
     Active Substance: METHOTREXATE
     Indication: RHEUMATOID ARTHRITIS
     Route: 048
     Dates: start: 2000
  16. ISOSORBIDE DINITRATE. [Concomitant]
     Active Substance: ISOSORBIDE DINITRATE
     Indication: PROPHYLAXIS
     Route: 060
     Dates: start: 201112
  17. COLECALCIFEROL [Concomitant]
     Active Substance: CHOLECALCIFEROL
     Indication: PROPHYLAXIS
     Route: 048
     Dates: start: 201110
  18. COLDACT (CHLORPHENIRAMINE MALEATE/PHENYLPROPANOLAMINE HYDROCHLORIDE) [Concomitant]
     Indication: NASOPHARYNGITIS
     Route: 048
     Dates: start: 20131008, end: 20131014
  19. CHLORHEXIDINE [Concomitant]
     Active Substance: CHLORHEXIDINE
     Indication: ABSCESS LIMB
     Route: 061
     Dates: start: 20141002
  20. TORASEMIDUM [Concomitant]
     Indication: AORTIC ANEURYSM
     Route: 048
     Dates: start: 20150212
  21. CEFTRIAXONUM [Concomitant]
     Indication: PNEUMONIA
     Route: 042
     Dates: start: 20130204, end: 20130215
  22. CELECOXIB. [Concomitant]
     Active Substance: CELECOXIB
     Indication: RHEUMATOID ARTHRITIS
     Route: 048
     Dates: start: 20120404, end: 20120411
  23. ERYTHROMYCIN. [Concomitant]
     Active Substance: ERYTHROMYCIN
     Route: 048
     Dates: start: 20130204, end: 20130215
  24. CYANOCOBALAMIN. [Concomitant]
     Active Substance: CYANOCOBALAMIN
     Indication: PNEUMONIA
     Route: 030
     Dates: start: 20130204, end: 20130215
  25. AMOXICILLIN. [Concomitant]
     Active Substance: AMOXICILLIN
     Indication: ABSCESS LIMB
     Route: 048
     Dates: start: 20140430
  26. BROMHEXINE [Concomitant]
     Active Substance: BROMHEXINE
     Indication: PNEUMONIA
     Route: 048
     Dates: start: 20130204, end: 20130215
  27. BISOPROLOL [Concomitant]
     Active Substance: BISOPROLOL
     Indication: HYPERTENSION
     Route: 048
  28. PREDNISOLONE. [Concomitant]
     Active Substance: PREDNISOLONE
     Route: 048
     Dates: start: 2000
  29. FOLIC ACID. [Concomitant]
     Active Substance: FOLIC ACID
     Indication: PROPHYLAXIS
     Route: 048
     Dates: start: 2000
  30. OMEPRAZOLE. [Concomitant]
     Active Substance: OMEPRAZOLE
     Indication: PROPHYLAXIS
     Route: 048
     Dates: start: 2000
  31. DEXALGIN [Concomitant]
     Route: 030
     Dates: start: 20131213, end: 20131215
  32. ATORVASTATIN [Concomitant]
     Active Substance: ATORVASTATIN
     Indication: AORTIC ANEURYSM
     Route: 048
     Dates: start: 20150209

REACTIONS (2)
  - Pulmonary thrombosis [Fatal]
  - Abscess limb [Not Recovered/Not Resolved]

NARRATIVE: CASE EVENT DATE: 20151128
